FAERS Safety Report 12410895 (Version 2)
Quarter: 2016Q2

REPORT INFORMATION
  Report Type: Spontaneous
  Country: DE (occurrence: DE)
  Receive Date: 20160527
  Receipt Date: 20160620
  Transmission Date: 20160815
  Serious: Yes (Other)
  Sender: FDA-Public Use
  Company Number: DE-009507513-1605DEU007157

PATIENT
  Age: 42 Year
  Sex: Female

DRUGS (3)
  1. L THYROX [Concomitant]
     Indication: AUTOIMMUNE THYROIDITIS
  2. IMPLANON [Suspect]
     Active Substance: ETONOGESTREL
     Dosage: SECOND ROD
     Route: 059
  3. IMPLANON [Suspect]
     Active Substance: ETONOGESTREL
     Indication: CONTRACEPTION
     Dosage: FIRST ROD
     Dates: end: 2016

REACTIONS (4)
  - Surgery [Unknown]
  - Device dislocation [Recovered/Resolved]
  - Overdose [Unknown]
  - Inappropriate schedule of drug administration [Unknown]

NARRATIVE: CASE EVENT DATE: 2016
